FAERS Safety Report 24889120 (Version 1)
Quarter: 2025Q1

REPORT INFORMATION
  Report Type: Spontaneous
  Country: US (occurrence: US)
  Receive Date: 20250127
  Receipt Date: 20250127
  Transmission Date: 20250408
  Serious: Yes (Other)
  Sender: CHEPLAPHARM
  Company Number: US-CHEPLA-2025001064

PATIENT
  Age: 57 Year
  Sex: Male

DRUGS (3)
  1. HYDROXYUREA [Suspect]
     Active Substance: HYDROXYUREA
     Indication: Essential thrombocythaemia
  2. ANAGRELIDE [Suspect]
     Active Substance: ANAGRELIDE
     Indication: Essential thrombocythaemia
  3. ASPIRIN [Suspect]
     Active Substance: ASPIRIN
     Indication: Essential thrombocythaemia

REACTIONS (5)
  - Paroxysmal nocturnal haemoglobinuria [Unknown]
  - Myelofibrosis [Unknown]
  - Haemolysis [Unknown]
  - Anaemia [Recovering/Resolving]
  - Upper respiratory tract infection [Unknown]
